FAERS Safety Report 24158487 (Version 1)
Quarter: 2024Q3

REPORT INFORMATION
  Report Type: Spontaneous
  Country: US (occurrence: US)
  Receive Date: 20240731
  Receipt Date: 20240731
  Transmission Date: 20241016
  Serious: Yes (Other)
  Sender: ABBVIE
  Company Number: US-ABBVIE-5859328

PATIENT
  Sex: Male

DRUGS (2)
  1. SYNTHROID [Suspect]
     Active Substance: LEVOTHYROXINE SODIUM
     Indication: Product used for unknown indication
     Route: 048
  2. SYNTHROID [Suspect]
     Active Substance: LEVOTHYROXINE SODIUM
     Indication: Product used for unknown indication
     Dosage: RAISED DOSE TO 225
     Route: 048

REACTIONS (12)
  - Thyroid disorder [Recovering/Resolving]
  - Visual impairment [Unknown]
  - Alopecia [Unknown]
  - Mood altered [Unknown]
  - Heart rate increased [Unknown]
  - Insomnia [Unknown]
  - Weight increased [Unknown]
  - Hypoaesthesia [Unknown]
  - Muscle spasms [Unknown]
  - Chest discomfort [Unknown]
  - Dysphonia [Recovering/Resolving]
  - Emotional disorder [Unknown]
